FAERS Safety Report 18522371 (Version 3)
Quarter: 2021Q3

REPORT INFORMATION
  Report Type: Spontaneous
  Country: US (occurrence: US)
  Receive Date: 20201119
  Receipt Date: 20210715
  Transmission Date: 20211014
  Serious: Yes (Hospitalization, Other)
  Sender: FDA-Public Use
  Company Number: US-DRREDDYS-USA/USA/20/0129285

PATIENT
  Age: 59 Year
  Sex: Female

DRUGS (2)
  1. GEMCITABINE. [Suspect]
     Active Substance: GEMCITABINE
     Indication: ADENOCARCINOMA PANCREAS
  2. PACLITAXEL. [Suspect]
     Active Substance: PACLITAXEL
     Indication: ADENOCARCINOMA PANCREAS

REACTIONS (6)
  - Necrosis [Recovering/Resolving]
  - Toxic erythema of chemotherapy [Recovering/Resolving]
  - Hyponatraemia [Unknown]
  - Febrile neutropenia [Recovering/Resolving]
  - Intertrigo [Recovering/Resolving]
  - Thrombocytopenia [Unknown]
